FAERS Safety Report 19155973 (Version 1)
Quarter: 2021Q2

REPORT INFORMATION
  Report Type: Report from Study
  Country: None (occurrence: FR)
  Receive Date: 20210420
  Receipt Date: 20210420
  Transmission Date: 20210717
  Serious: Yes (Other)
  Sender: FDA-Public Use
  Company Number: FR-ABBVIE-21K-056-3859869-00

PATIENT
  Age: 18 Year
  Sex: Female

DRUGS (5)
  1. HUMIRA [Suspect]
     Active Substance: ADALIMUMAB
     Indication: CROHN^S DISEASE
     Route: 058
     Dates: start: 20200919, end: 20200919
  2. HUMIRA [Suspect]
     Active Substance: ADALIMUMAB
     Route: 058
     Dates: start: 202102
  3. HUMIRA [Suspect]
     Active Substance: ADALIMUMAB
     Dosage: WEEK 2
     Route: 058
     Dates: start: 2020, end: 2020
  4. HUMIRA [Suspect]
     Active Substance: ADALIMUMAB
     Dosage: WEEK 4
     Route: 058
     Dates: start: 2020, end: 2020
  5. CORTISONE [Concomitant]
     Active Substance: CORTISONE
     Indication: COLITIS
     Route: 048
     Dates: start: 20210405

REACTIONS (11)
  - Drug ineffective [Not Recovered/Not Resolved]
  - Abdominal pain upper [Recovering/Resolving]
  - Device issue [Unknown]
  - Colitis [Not Recovered/Not Resolved]
  - Unevaluable event [Recovering/Resolving]
  - Fatigue [Recovering/Resolving]
  - Hypophagia [Unknown]
  - Fluid intake reduced [Unknown]
  - Crohn^s disease [Recovered/Resolved]
  - Headache [Recovering/Resolving]
  - Pain [Unknown]

NARRATIVE: CASE EVENT DATE: 202102
